FAERS Safety Report 12911096 (Version 1)
Quarter: 2016Q4

REPORT INFORMATION
  Report Type: Spontaneous
  Country: CA (occurrence: CA)
  Receive Date: 20161104
  Receipt Date: 20161104
  Transmission Date: 20170207
  Serious: Yes (Hospitalization)
  Sender: FDA-Public Use
  Company Number: CA-FRESENIUS KABI-FK201608427

PATIENT
  Age: 68 Year
  Sex: Female

DRUGS (3)
  1. VANCOMYCIN (MANUFACTURER UNKNOWN) [Suspect]
     Active Substance: VANCOMYCIN
     Indication: SPINAL CORD INFECTION
     Route: 042
  2. VANCOMYCIN (MANUFACTURER UNKNOWN) [Suspect]
     Active Substance: VANCOMYCIN
     Indication: OSTEOMYELITIS
  3. TEVA-GABAPENTIN [Concomitant]
     Active Substance: GABAPENTIN
     Indication: PRODUCT USED FOR UNKNOWN INDICATION
     Route: 065

REACTIONS (14)
  - Biopsy skin abnormal [Recovering/Resolving]
  - Rash erythematous [Recovering/Resolving]
  - Toxic epidermal necrolysis [Recovering/Resolving]
  - Drug hypersensitivity [Recovering/Resolving]
  - Toxicity to various agents [Recovering/Resolving]
  - Hypovolaemia [Recovering/Resolving]
  - Stevens-Johnson syndrome [Recovering/Resolving]
  - Erythema multiforme [Recovering/Resolving]
  - Hypophagia [Recovering/Resolving]
  - Mucosal pain [Recovering/Resolving]
  - Blood creatinine increased [Recovering/Resolving]
  - Dermatitis [Recovering/Resolving]
  - Histology abnormal [Recovering/Resolving]
  - Hypotension [Recovering/Resolving]
